FAERS Safety Report 5457027-0 (Version None)
Quarter: 2007Q3

REPORT INFORMATION
  Report Type: 
  Country: None (occurrence: None)
  Receive Date: 20070918
  Receipt Date: 20070330
  Transmission Date: 20080115
  Serious: Yes (Other)
  Sender: FDA-Public Use
  Company Number: US-ASTRAZENECA-2006UW27736

PATIENT
  Age: 24 Year
  Sex: Female
  Weight: 120.5 kg

DRUGS (8)
  1. SEROQUEL [Suspect]
     Indication: ANXIETY
     Route: 048
     Dates: start: 20000101, end: 20010101
  2. SEROQUEL [Suspect]
     Indication: DEPRESSION
     Route: 048
     Dates: start: 20000101, end: 20010101
  3. ABILIFY [Concomitant]
  4. GEODON [Concomitant]
     Dates: start: 20010101
  5. RISPERDAL [Concomitant]
  6. ZYPREXA [Concomitant]
     Dates: start: 20040101
  7. LITHIUM CARBONATE [Concomitant]
  8. GABITRIL [Concomitant]

REACTIONS (3)
  - DIABETES MELLITUS [None]
  - DIABETIC KETOACIDOSIS [None]
  - WEIGHT INCREASED [None]
